FAERS Safety Report 6969453-9 (Version None)
Quarter: 2010Q3

REPORT INFORMATION
  Report Type: 
  Country: None (occurrence: None)
  Receive Date: 20100902
  Receipt Date: 20100824
  Transmission Date: 20110219
  Serious: Yes (Hospitalization)
  Sender: FDA-Public Use
  Company Number: DSU-2010-04319

PATIENT
  Age: 78 Year
  Sex: Female
  Weight: 65.7716 kg

DRUGS (7)
  1. WELCHOL [Suspect]
     Indication: HYPERCHOLESTEROLAEMIA
     Dosage: 3750MG (3750 MG, QD) PER ORAL
     Route: 048
     Dates: start: 20100501, end: 20100801
  2. SYNTHROID (LEVOTHYROXINE SODIUM) (LEVOTHYROXINE SODIUM) [Concomitant]
  3. RYNATAN (CHLORPHEN TANNATE, PHENYLEPHRINE TANNATE) (CHLORPHENAMINE TAN [Concomitant]
  4. NEXIUM (ESOMEPRAZOLE MAGNESIUM) (40 MILLIGRAM) (ESOMEPRAZOLE MAGNESIUM [Concomitant]
  5. LOVAZ (OMEGA 3 MARINE TRIGLYCERIDES)  (OMEGA-3 MARINE TRIGLYCERIDES) [Concomitant]
  6. BIOTIN (BIOTIN) (100 MILLIGRAM) (BIOTIN) [Concomitant]
  7. CALCIUM (CALCIUM) (CALCIUM) [Concomitant]

REACTIONS (5)
  - CHEST PAIN [None]
  - CONDITION AGGRAVATED [None]
  - GASTRIC DISORDER [None]
  - HIATUS HERNIA [None]
  - SENSATION OF FOREIGN BODY [None]
